FAERS Safety Report 15496530 (Version 1)
Quarter: 2018Q4

REPORT INFORMATION
  Report Type: Spontaneous
  Country: US (occurrence: US)
  Receive Date: 20181013
  Receipt Date: 20181013
  Transmission Date: 20190205
  Serious: No
  Sender: FDA-Public Use
  Company Number: US-TEVA-2018-US-962795

PATIENT
  Sex: Female

DRUGS (1)
  1. DIAMOX SEQUELS [Suspect]
     Active Substance: ACETAZOLAMIDE
     Route: 065

REACTIONS (2)
  - Blood potassium decreased [Unknown]
  - Diarrhoea [Unknown]
